FAERS Safety Report 25321070 (Version 1)
Quarter: 2025Q2

REPORT INFORMATION
  Report Type: Spontaneous
  Country: US (occurrence: US)
  Receive Date: 20250515
  Receipt Date: 20250515
  Transmission Date: 20250717
  Serious: No
  Sender: SANOFI AVENTIS
  Company Number: US-SA-2025SA137836

PATIENT
  Sex: Female

DRUGS (2)
  1. DUPIXENT [Suspect]
     Active Substance: DUPILUMAB
     Indication: Nasal polyps
     Route: 065
  2. DUPIXENT [Suspect]
     Active Substance: DUPILUMAB
     Indication: Chronic rhinosinusitis with nasal polyps
     Dosage: 300 MG, QOW
     Route: 065
     Dates: end: 2025

REACTIONS (6)
  - Fibromyalgia [Recovering/Resolving]
  - Photosensitivity reaction [Unknown]
  - Pruritus [Unknown]
  - Urticaria [Unknown]
  - Arthralgia [Recovering/Resolving]
  - Incorrect dose administered [Unknown]
